FAERS Safety Report 10252423 (Version 3)
Quarter: 2014Q3

REPORT INFORMATION
  Report Type: Report from Study
  Country: BO (occurrence: BO)
  Receive Date: 20140623
  Receipt Date: 20140709
  Transmission Date: 20150326
  Serious: Yes (Death, Other)
  Sender: FDA-Public Use
  Company Number: PHHY2013BO123992

PATIENT
  Sex: Female

DRUGS (2)
  1. GLIVEC [Suspect]
     Active Substance: IMATINIB MESYLATE
     Indication: CHRONIC MYELOID LEUKAEMIA
     Dosage: 400 MG, A DAY
     Route: 048
     Dates: start: 200707
  2. GLIVEC [Suspect]
     Active Substance: IMATINIB MESYLATE
     Dosage: 300 MG, A DAY
     Dates: start: 200708, end: 20131028

REACTIONS (3)
  - General physical health deterioration [Not Recovered/Not Resolved]
  - Leukopenia [Unknown]
  - Death [Fatal]
